FAERS Safety Report 6427159-9 (Version None)
Quarter: 2009Q4

REPORT INFORMATION
  Report Type: 
  Country: None (occurrence: None)
  Receive Date: 20091104
  Receipt Date: 20091021
  Transmission Date: 20100525
  Serious: Yes (Hospitalization)
  Sender: FDA-Public Use
  Company Number: FR-GENENTECH-213148

PATIENT
  Sex: Female
  Weight: 68.98 kg

DRUGS (14)
  1. BEVACIZUMAB [Suspect]
     Indication: COLON CANCER
     Dosage: 525 MG, Q3W
     Route: 042
     Dates: start: 20050113, end: 20050203
  2. CAPECITABINE [Suspect]
     Indication: COLON CANCER
     Dosage: 3300 MG, QDX14D/21DC
     Route: 048
     Dates: start: 20050113, end: 20050209
  3. OXALIPLATIN [Suspect]
     Indication: COLON CANCER
     Dosage: 230 MG, Q3W
     Route: 042
     Dates: start: 20050113, end: 20050203
  4. LODOZ [Concomitant]
     Indication: DRUG USE FOR UNKNOWN INDICATION
  5. TANAKAN [Concomitant]
     Indication: DRUG USE FOR UNKNOWN INDICATION
  6. FENOFIBRATE [Concomitant]
     Indication: DRUG USE FOR UNKNOWN INDICATION
  7. OXAZEPAM [Concomitant]
     Indication: DRUG USE FOR UNKNOWN INDICATION
  8. ONDANSETRON [Concomitant]
     Indication: DRUG USE FOR UNKNOWN INDICATION
     Dates: start: 20050113, end: 20050203
  9. METHYLPREDNISOLONE 4MG TAB [Concomitant]
     Indication: DRUG USE FOR UNKNOWN INDICATION
     Dosage: UNK, UNK
     Dates: start: 20050113, end: 20050203
  10. CEFOTAXIME [Concomitant]
     Indication: DRUG USE FOR UNKNOWN INDICATION
     Dates: start: 20050217
  11. METRONIDAZOLE [Concomitant]
     Indication: DRUG USE FOR UNKNOWN INDICATION
     Dates: start: 20050217
  12. AMIKACIN [Concomitant]
     Indication: DRUG USE FOR UNKNOWN INDICATION
     Dates: start: 20050219, end: 20050224
  13. AMIODARONE [Concomitant]
     Indication: DRUG USE FOR UNKNOWN INDICATION
     Dates: start: 20050221
  14. FLUCONAZOLE [Concomitant]
     Indication: DRUG USE FOR UNKNOWN INDICATION
     Dates: start: 20050221

REACTIONS (1)
  - CANDIDA SEPSIS [None]
